FAERS Safety Report 23430298 (Version 6)
Quarter: 2025Q1

REPORT INFORMATION
  Report Type: Spontaneous
  Country: PK (occurrence: PK)
  Receive Date: 20240123
  Receipt Date: 20250324
  Transmission Date: 20250409
  Serious: Yes (Other)
  Sender: AMGEN
  Company Number: PK-PFIZER INC-2020265003

PATIENT
  Age: 52 Year
  Sex: Female
  Weight: 72 kg

DRUGS (17)
  1. ENBREL [Suspect]
     Active Substance: ETANERCEPT
     Indication: Rheumatoid arthritis
     Dosage: EVERY 3 MONTHS
     Route: 065
  2. ENBREL [Suspect]
     Active Substance: ETANERCEPT
     Indication: Osteoarthritis
     Dosage: UNK, 2X/WEEK
     Route: 058
  3. ENBREL [Suspect]
     Active Substance: ETANERCEPT
     Dosage: 50 MG, WEEKLY
     Route: 058
  4. ENBREL [Suspect]
     Active Substance: ETANERCEPT
     Dosage: 50 MG, EVERY TWO WEEKS
     Route: 058
  5. ENBREL [Suspect]
     Active Substance: ETANERCEPT
     Dosage: 50 MG, WEEKLY (EVERY WEEK FOR 3 MONTHS)
     Route: 058
     Dates: start: 20211204
  6. ENBREL [Suspect]
     Active Substance: ETANERCEPT
     Route: 065
  7. ENBREL [Suspect]
     Active Substance: ETANERCEPT
     Dosage: 50 MG, WEEKLY (FOR 2 MONTHS)
     Route: 058
     Dates: start: 202205
  8. DEPO-MEDROL [Concomitant]
     Active Substance: METHYLPREDNISOLONE ACETATE
     Dosage: 80 MILLIGRAM, QWK
     Route: 065
     Dates: start: 20201230
  9. METHOTREXATE SODIUM [Concomitant]
     Active Substance: METHOTREXATE SODIUM
     Dosage: EVERY WEEK 4CC
     Route: 065
  10. FOLIC ACID [Concomitant]
     Active Substance: FOLIC ACID
     Dosage: 5 MG, WEEKLY(SUNDAY)
     Route: 065
  11. Krotam [Concomitant]
     Route: 065
  12. Tramal plus [Concomitant]
     Route: 065
  13. Osnate D [Concomitant]
     Route: 065
  14. Flexin [Concomitant]
     Route: 065
  15. Capcidol [Concomitant]
     Route: 065
  16. Trexol [Concomitant]
     Route: 065
  17. FELDENE [Concomitant]
     Active Substance: PIROXICAM
     Indication: Pain
     Dosage: 200 MG, ONCE DAILY
     Route: 065

REACTIONS (12)
  - Polyarthritis [Unknown]
  - Rheumatoid arthritis [Unknown]
  - Joint swelling [Unknown]
  - Joint stiffness [Unknown]
  - Wrist deformity [Unknown]
  - Loss of personal independence in daily activities [Unknown]
  - Deformity [Unknown]
  - Off label use [Unknown]
  - Intentional product misuse [Unknown]
  - Joint noise [Unknown]
  - Arthralgia [Recovered/Resolved]
  - Pyrexia [Unknown]
